FAERS Safety Report 9993924 (Version 2)
Quarter: 2014Q1

REPORT INFORMATION
  Report Type: Spontaneous
  Country: US (occurrence: US)
  Receive Date: 20140310
  Receipt Date: 20140310
  Transmission Date: 20141002
  Serious: Yes (Other)
  Sender: FDA-Public Use
  Company Number: US-AMGEN-USASP2013037826

PATIENT
  Age: 15 Year
  Sex: Male
  Weight: 38 kg

DRUGS (8)
  1. SENSIPAR [Suspect]
     Indication: HYPERPARATHYROIDISM SECONDARY
     Dosage: 30 MG, QD
     Route: 048
     Dates: start: 20121113, end: 20130523
  2. RENVELA [Concomitant]
  3. CALCIUM ACETATE [Concomitant]
     Dosage: 200 MG, UNK
     Dates: start: 20120320
  4. ANTIHYPERTENSIVES [Concomitant]
  5. PHOS CAL [Concomitant]
     Indication: RENAL OSTEODYSTROPHY
     Route: 048
  6. VENOFER [Concomitant]
     Indication: ANAEMIA
     Dosage: 50 MG, UNK
     Route: 042
  7. PROCRIT                            /00909301/ [Concomitant]
     Indication: ANAEMIA
     Dosage: 1800 UNIT, UNK
     Route: 042
  8. CALCITRIOL [Concomitant]
     Dosage: 0.5 MUG, UNK
     Dates: start: 20121004, end: 20130207

REACTIONS (8)
  - Hypocalcaemia [Recovering/Resolving]
  - Blood calcium abnormal [Unknown]
  - Drug effect decreased [Unknown]
  - Blood pressure increased [Unknown]
  - Drug interaction [Unknown]
  - Wrong technique in drug usage process [Unknown]
  - Arthralgia [Unknown]
  - Muscle spasms [Unknown]
